FAERS Safety Report 8595342-2 (Version None)
Quarter: 2012Q3

REPORT INFORMATION
  Report Type: 
  Country: None (occurrence: None)
  Receive Date: 20120815
  Receipt Date: 20120814
  Transmission Date: 20120928
  Serious: Yes (Other)
  Sender: FDA-Public Use
  Company Number: PHHY2012FR066725

PATIENT
  Sex: Female
  Weight: 80 kg

DRUGS (8)
  1. PROCORALAN [Concomitant]
     Indication: CARDIAC DISORDER
     Dosage: UNK UKN, UNK
     Route: 065
  2. PLAVIX [Concomitant]
     Indication: CARDIAC DISORDER
     Dosage: UNK UKN, UNK
     Route: 065
  3. ATORVASTATIN [Concomitant]
     Indication: CARDIAC DISORDER
     Dosage: UNK UKN, UNK
     Route: 065
  4. LASIX [Concomitant]
     Indication: CARDIAC DISORDER
     Dosage: UNK UKN, UNK
     Route: 065
  5. FLUTICASONE PROPIONATE/SALMETEROL [Concomitant]
  6. SPIRIVA [Concomitant]
  7. FEMARA [Suspect]
     Indication: BREAST CANCER
     Route: 065
     Dates: start: 20120401, end: 20120801
  8. ASPIRIN [Concomitant]
     Indication: CARDIAC DISORDER
     Dosage: UNK UKN, UNK
     Route: 065

REACTIONS (4)
  - HYPOKINESIA [None]
  - DYSPNOEA [None]
  - RESTRICTIVE PULMONARY DISEASE [None]
  - DISCOMFORT [None]
